FAERS Safety Report 16809052 (Version 5)
Quarter: 2022Q4

REPORT INFORMATION
  Report Type: Report from Study
  Country: US (occurrence: US)
  Receive Date: 20190916
  Receipt Date: 20221010
  Transmission Date: 20230113
  Serious: No
  Sender: FDA-Public Use
  Company Number: PHEH2019US037907

PATIENT
  Sex: Female

DRUGS (1)
  1. PROMACTA [Suspect]
     Active Substance: ELTROMBOPAG OLAMINE
     Indication: Product used for unknown indication
     Dosage: UNK
     Route: 065

REACTIONS (6)
  - Weight decreased [Unknown]
  - Illness [Unknown]
  - Alopecia [Unknown]
  - Fatigue [Unknown]
  - Asthenia [Unknown]
  - Full blood count decreased [Unknown]
